FAERS Safety Report 9911574 (Version 2)
Quarter: 2014Q1

REPORT INFORMATION
  Report Type: Spontaneous
  Country: US (occurrence: US)
  Receive Date: 20140219
  Receipt Date: 20140219
  Transmission Date: 20141002
  Serious: Yes (Other)
  Sender: FDA-Public Use
  Company Number: PHHY2013US153506

PATIENT
  Sex: Female

DRUGS (19)
  1. ELIDEL [Suspect]
     Dosage: 1 DF(APPLICATION), BID
     Route: 061
  2. LIORESAL INTRATECAL [Suspect]
     Indication: MUSCLE SPASTICITY
     Dosage: 1600 UG PER DAY
     Route: 037
  3. VOLTAREN [Suspect]
     Dosage: UNK UKN, QID
     Route: 061
  4. TIZANIDINE [Suspect]
     Dosage: 2 DF (1-2 TABLETS), TID
     Route: 048
  5. BACLOFEN [Suspect]
     Dosage: 1 DF (1 TABLET), TID
     Route: 048
  6. CETIRIZINE HYDROCHLORIDE+PSEUDOEPHEDRINE HYDROCHLORIDE ER [Suspect]
     Dosage: 1 DF(TABLET), PRN (BID)
     Route: 048
  7. CLOBETASOL PROPIONATE [Suspect]
     Dosage: 1 DF(APPLICATION), BID
     Route: 061
  8. RANITIDINE HYDROCHLORIDE [Suspect]
     Dosage: 1 DF, DAILY
     Route: 048
  9. TRAMADOL HYDROCHLORIDE TABLETS [Suspect]
     Indication: PAIN
     Dosage: 1 DF(TABLET), PRN (QID)
     Route: 048
     Dates: start: 20130219
  10. PROTONIC [Suspect]
     Dosage: 1 DF (TABLET), BID
     Route: 048
  11. MUPIROCIN [Suspect]
     Dosage: 1 DF (APPLICATION), TID
     Route: 061
  12. DOCUSATE SODIUM [Suspect]
     Dosage: 2 DF (CAPSULES), QHS
     Route: 048
  13. CELEXA [Suspect]
     Dosage: 1 DF(TABLET), DAILY
     Route: 048
  14. FLONASE [Suspect]
     Dosage: 0.05 MG, DAILY
     Route: 045
  15. VITAMIN D3 [Suspect]
     Dosage: 1000 IU, UNK
     Route: 048
  16. TYLENOL PM [Suspect]
     Indication: INSOMNIA
     Dosage: 1 DF, PRN (QHS)
     Route: 048
  17. SILVER SULFADIAZINE [Suspect]
     Dosage: 1 DF (APPLICATION), BID
     Route: 061
  18. ASTELIN [Suspect]
     Dosage: 2 DF (2 SPRAYS OF 137 MCG), BID
     Route: 045
  19. MULTI-VIT [Suspect]
     Dosage: 1 DF(TABLET), DAILY
     Route: 048

REACTIONS (6)
  - Osteoarthritis [Recovering/Resolving]
  - Carpal tunnel syndrome [Recovering/Resolving]
  - Rotator cuff syndrome [Recovering/Resolving]
  - Underdose [Recovering/Resolving]
  - Muscle spasticity [Recovering/Resolving]
  - No therapeutic response [Recovering/Resolving]
